FAERS Safety Report 6102834-4 (Version None)
Quarter: 2009Q1

REPORT INFORMATION
  Report Type: 
  Country: None (occurrence: None)
  Receive Date: 20090227
  Receipt Date: 20080226
  Transmission Date: 20090719
  Serious: Yes (Other)
  Sender: FDA-Public Use
  Company Number: 549544

PATIENT
  Sex: Female
  Weight: 2.7 kg

DRUGS (2)
  1. ACCUTANE [Suspect]
     Indication: ACNE
     Dosage: 40 MG 2 PER DAY
     Dates: start: 20040903
  2. CLARITIN [Concomitant]

REACTIONS (1)
  - NO ADVERSE EVENT [None]
